FAERS Safety Report 8112277-X (Version None)
Quarter: 2012Q1

REPORT INFORMATION
  Report Type: 
  Country: None (occurrence: None)
  Receive Date: 20120203
  Receipt Date: 20120203
  Transmission Date: 20120608
  Serious: Yes (Other)
  Sender: FDA-Public Use
  Company Number: None

PATIENT
  Sex: Male

DRUGS (2)
  1. GABAPENTIN [Concomitant]
  2. KEPPRA [Suspect]
     Indication: CONVULSION PROPHYLAXIS
     Dosage: 1 TABLET
     Route: 048
     Dates: start: 20070101, end: 20120202

REACTIONS (7)
  - INSOMNIA [None]
  - MUSCLE SPASMS [None]
  - HYPERKINESIA [None]
  - PANIC ATTACK [None]
  - IRRITABILITY [None]
  - DEPRESSION [None]
  - SOMNOLENCE [None]
